FAERS Safety Report 20069222 (Version 1)
Quarter: 2021Q4

REPORT INFORMATION
  Report Type: Spontaneous
  Country: CA (occurrence: CA)
  Receive Date: 20211115
  Receipt Date: 20211115
  Transmission Date: 20220303
  Serious: Yes (Other)
  Sender: FDA-Public Use
  Company Number: CA-PFIZER INC-202101539365

PATIENT
  Age: 17 Year
  Sex: Female
  Weight: 50.34 kg

DRUGS (2)
  1. ZOLOFT [Suspect]
     Active Substance: SERTRALINE HYDROCHLORIDE
     Indication: Depression
     Dosage: 100 MG, 1X/DAY
     Route: 048
  2. ZOLOFT [Suspect]
     Active Substance: SERTRALINE HYDROCHLORIDE
     Indication: Anxiety

REACTIONS (11)
  - Abnormal behaviour [Unknown]
  - Anger [Unknown]
  - Drug ineffective [Unknown]
  - Decreased appetite [Unknown]
  - Drug ineffective [Unknown]
  - Hypomania [Unknown]
  - Impulsive behaviour [Unknown]
  - Insomnia [Unknown]
  - Pain [Unknown]
  - Suicidal ideation [Unknown]
  - Tremor [Unknown]
